FAERS Safety Report 10589089 (Version 1)
Quarter: 2014Q4

REPORT INFORMATION
  Report Type: Spontaneous
  Country: BR (occurrence: BR)
  Receive Date: 20141118
  Receipt Date: 20141118
  Transmission Date: 20150529
  Serious: Yes (Other)
  Sender: FDA-Public Use
  Company Number: BR-ROCHE-1489123

PATIENT
  Age: 35 Year
  Sex: Female
  Weight: 90 kg

DRUGS (2)
  1. XENICAL [Suspect]
     Active Substance: ORLISTAT
     Indication: OVERWEIGHT
     Route: 065
     Dates: start: 2012
  2. XENICAL [Suspect]
     Active Substance: ORLISTAT
     Indication: OBESITY
     Route: 065
     Dates: start: 20141110

REACTIONS (3)
  - Weight increased [Not Recovered/Not Resolved]
  - Depression [Not Recovered/Not Resolved]
  - Full blood count abnormal [Unknown]

NARRATIVE: CASE EVENT DATE: 2014
